FAERS Safety Report 25185591 (Version 1)
Quarter: 2025Q2

REPORT INFORMATION
  Report Type: Spontaneous
  Country: IT (occurrence: IT)
  Receive Date: 20250410
  Receipt Date: 20250410
  Transmission Date: 20250717
  Serious: Yes (Other)
  Sender: MYLAN
  Company Number: IT-MYLANLABS-2025M1030542

PATIENT
  Age: 65 Year
  Sex: Male

DRUGS (8)
  1. PREDNISONE [Suspect]
     Active Substance: PREDNISONE
     Indication: Immunosuppressant drug therapy
     Dosage: 1 MILLIGRAM/KILOGRAM, QD
  2. PREDNISONE [Suspect]
     Active Substance: PREDNISONE
     Indication: Nervous system disorder
     Dosage: 1 MILLIGRAM/KILOGRAM, QD
  3. PREDNISONE [Suspect]
     Active Substance: PREDNISONE
     Indication: Chronic graft versus host disease
     Dosage: 1 MILLIGRAM/KILOGRAM, QD
     Route: 065
  4. PREDNISONE [Suspect]
     Active Substance: PREDNISONE
     Dosage: 1 MILLIGRAM/KILOGRAM, QD
     Route: 065
  5. PREDNISONE [Suspect]
     Active Substance: PREDNISONE
  6. PREDNISONE [Suspect]
     Active Substance: PREDNISONE
  7. PREDNISONE [Suspect]
     Active Substance: PREDNISONE
     Route: 065
  8. PREDNISONE [Suspect]
     Active Substance: PREDNISONE
     Route: 065

REACTIONS (13)
  - Condition aggravated [Unknown]
  - Rebound effect [Unknown]
  - Dysphagia [Unknown]
  - Dysarthria [Unknown]
  - Confusional state [Unknown]
  - Visual processing disorder [Unknown]
  - Disorientation [Unknown]
  - Hemiparesis [Unknown]
  - Mood swings [Unknown]
  - Fluid retention [Unknown]
  - Hypertension [Unknown]
  - Dermatitis [Unknown]
  - Ecchymosis [Unknown]
